FAERS Safety Report 8221412-4 (Version None)
Quarter: 2012Q1

REPORT INFORMATION
  Report Type: 
  Country: None (occurrence: None)
  Receive Date: 20120320
  Receipt Date: 20120319
  Transmission Date: 20120608
  Serious: Yes (Death)
  Sender: FDA-Public Use
  Company Number: PHHY2012CR023952

PATIENT
  Age: 64 Year
  Sex: Female

DRUGS (1)
  1. EXFORGE [Suspect]
     Dosage: (320/10 MG), UNK

REACTIONS (3)
  - METASTASES TO LIVER [None]
  - METASTASES TO PANCREAS [None]
  - BREAST CANCER METASTATIC [None]
